FAERS Safety Report 9000095 (Version 2)
Quarter: 2013Q1

REPORT INFORMATION
  Report Type: Spontaneous
  Country: IT (occurrence: IT)
  Receive Date: 20130102
  Receipt Date: 20130124
  Transmission Date: 20140127
  Serious: Yes (Other)
  Sender: FDA-Public Use
  Company Number: IT-BRISTOL-MYERS SQUIBB COMPANY-17238767

PATIENT
  Age: 46 Year
  Sex: Male

DRUGS (5)
  1. ABILIFY [Suspect]
     Indication: SCHIZOPHRENIA
     Route: 048
     Dates: start: 20111214, end: 20121214
  2. MICARDIS [Concomitant]
  3. SEROQUEL [Concomitant]
     Dosage: TABLETS PROLONGED RELEASE;
  4. HALDOL [Concomitant]
  5. NORVASC [Concomitant]

REACTIONS (2)
  - Delirium [Recovering/Resolving]
  - Hallucination, auditory [Recovering/Resolving]
